FAERS Safety Report 21407473 (Version 2)
Quarter: 2022Q4

REPORT INFORMATION
  Report Type: Report from Study
  Country: US (occurrence: US)
  Receive Date: 20221004
  Receipt Date: 20221020
  Transmission Date: 20230113
  Serious: Yes (Death, Hospitalization)
  Sender: FDA-Public Use
  Company Number: US-AQUESTIVE THERAPEUTICS, INC-2022AQU00101

PATIENT
  Age: 70 Year
  Sex: Male
  Weight: 74.83 kg

DRUGS (2)
  1. EXSERVAN [Suspect]
     Active Substance: RILUZOLE
     Indication: Amyotrophic lateral sclerosis
     Dosage: 1 DOSAGE UNITS, 2X/DAY
     Route: 048
     Dates: start: 202208, end: 202209
  2. RADICAVA [Concomitant]
     Active Substance: EDARAVONE

REACTIONS (3)
  - Amyotrophic lateral sclerosis [Fatal]
  - Respiratory arrest [Fatal]
  - Gastrointestinal tube insertion [Unknown]

NARRATIVE: CASE EVENT DATE: 20220901
